FAERS Safety Report 26174617 (Version 1)
Quarter: 2025Q4

REPORT INFORMATION
  Report Type: Spontaneous
  Country: EU (occurrence: EU)
  Receive Date: 20251218
  Receipt Date: 20251218
  Transmission Date: 20260118
  Serious: Yes (Other)
  Sender: CELLTRION
  Company Number: EU-CELLTRION INC.-2025PT043230

PATIENT

DRUGS (23)
  1. ADALIMUMAB [Suspect]
     Active Substance: ADALIMUMAB
     Indication: Retinal dystrophy
     Dosage: 40 MG EVERY TWO WEEKS/40 MILLIGRAM, Q2WK
     Route: 058
  2. ADALIMUMAB [Suspect]
     Active Substance: ADALIMUMAB
     Indication: Optic disc oedema
  3. ADALIMUMAB [Suspect]
     Active Substance: ADALIMUMAB
     Indication: Splenomegaly
  4. ADALIMUMAB [Suspect]
     Active Substance: ADALIMUMAB
     Indication: Anhidrosis
  5. ADALIMUMAB [Suspect]
     Active Substance: ADALIMUMAB
     Indication: Headache
  6. ADALIMUMAB [Suspect]
     Active Substance: ADALIMUMAB
     Indication: Uveitis
  7. ADALIMUMAB [Suspect]
     Active Substance: ADALIMUMAB
     Indication: Scleritis
  8. RITUXIMAB [Suspect]
     Active Substance: RITUXIMAB
     Indication: Retinal dystrophy
     Dosage: UNK
  9. RITUXIMAB [Suspect]
     Active Substance: RITUXIMAB
     Indication: Optic disc oedema
  10. RITUXIMAB [Suspect]
     Active Substance: RITUXIMAB
     Indication: Splenomegaly
  11. RITUXIMAB [Suspect]
     Active Substance: RITUXIMAB
     Indication: Anhidrosis
  12. RITUXIMAB [Suspect]
     Active Substance: RITUXIMAB
     Indication: Headache
  13. TOCILIZUMAB [Suspect]
     Active Substance: TOCILIZUMAB
     Indication: Retinal dystrophy
     Dosage: 8 MG/KG
     Route: 042
  14. TOCILIZUMAB [Suspect]
     Active Substance: TOCILIZUMAB
     Indication: Optic disc oedema
  15. TOCILIZUMAB [Suspect]
     Active Substance: TOCILIZUMAB
     Indication: Splenomegaly
  16. TOCILIZUMAB [Suspect]
     Active Substance: TOCILIZUMAB
     Indication: Anhidrosis
  17. TOCILIZUMAB [Suspect]
     Active Substance: TOCILIZUMAB
     Indication: Headache
  18. METHOTREXATE [Suspect]
     Active Substance: METHOTREXATE
     Indication: Retinal dystrophy
     Dosage: 10 MG/M2, 1/WEEK/10 MILLIGRAM/SQ. METER, QWK
  19. METHOTREXATE [Suspect]
     Active Substance: METHOTREXATE
     Indication: Optic disc oedema
  20. METHOTREXATE [Suspect]
     Active Substance: METHOTREXATE
     Indication: Splenomegaly
  21. METHOTREXATE [Suspect]
     Active Substance: METHOTREXATE
     Indication: Anhidrosis
  22. METHOTREXATE [Suspect]
     Active Substance: METHOTREXATE
     Indication: Headache
  23. METHOTREXATE [Suspect]
     Active Substance: METHOTREXATE
     Indication: Scleritis

REACTIONS (10)
  - Macular oedema [Recovering/Resolving]
  - Retinal dystrophy [Recovered/Resolved]
  - Splenomegaly [Recovered/Resolved]
  - Anhidrosis [Recovered/Resolved]
  - Headache [Recovered/Resolved]
  - Drug ineffective for unapproved indication [Unknown]
  - Intentional product use issue [Unknown]
  - Off label use [Unknown]
  - Therapeutic product effect incomplete [Unknown]
  - Drug effective for unapproved indication [Unknown]
